FAERS Safety Report 11352987 (Version 1)
Quarter: 2015Q3

REPORT INFORMATION
  Report Type: Spontaneous
  Country: US (occurrence: US)
  Receive Date: 20150807
  Receipt Date: 20150807
  Transmission Date: 20151125
  Serious: No
  Sender: FDA-Public Use
  Company Number: US-JNJFOC-20150608670

PATIENT
  Age: 57 Year
  Sex: Female
  Weight: 72.58 kg

DRUGS (8)
  1. VITAMIN D [Concomitant]
     Active Substance: CHOLECALCIFEROL
     Indication: ROUTINE HEALTH MAINTENANCE
     Dosage: 3 MONTHS
     Route: 065
  2. WOMENS ROGAINE UNSCENTED [Suspect]
     Active Substance: MINOXIDIL
     Route: 061
  3. VITAMIN C [Concomitant]
     Active Substance: ASCORBIC ACID
     Indication: ROUTINE HEALTH MAINTENANCE
     Dosage: A COUPLE OF MONTHS
     Route: 065
  4. ADVAIR HFA [Concomitant]
     Active Substance: FLUTICASONE PROPIONATE\SALMETEROL XINAFOATE
     Indication: ASTHMA
     Dosage: 500 MCG 6+ YEARS
     Route: 065
  5. WOMENS ROGAINE UNSCENTED [Suspect]
     Active Substance: MINOXIDIL
     Indication: ALOPECIA
     Dosage: HALF A CAPFUL.
     Route: 061
  6. OMEGA 3 OIL [Concomitant]
     Indication: ROUTINE HEALTH MAINTENANCE
     Dosage: 1 MONTH AGO
     Route: 065
  7. BIOTIN [Concomitant]
     Active Substance: BIOTIN
     Indication: HAIR DISORDER
     Dosage: 10000 MCG; 3 MONTHS
     Route: 065
  8. BIOTIN [Concomitant]
     Active Substance: BIOTIN
     Indication: NAIL DISORDER
     Dosage: 10000 MCG; 3 MONTHS
     Route: 065

REACTIONS (3)
  - Hair disorder [Not Recovered/Not Resolved]
  - Product formulation issue [Unknown]
  - Drug ineffective [Not Recovered/Not Resolved]
